FAERS Safety Report 17730350 (Version 1)
Quarter: 2020Q2

REPORT INFORMATION
  Report Type: Spontaneous
  Country: US (occurrence: US)
  Receive Date: 20200430
  Receipt Date: 20200430
  Transmission Date: 20200714
  Serious: No
  Sender: FDA-Public Use
  Company Number: US-PFIZER INC-2020174436

PATIENT
  Age: 60 Year
  Sex: Male

DRUGS (1)
  1. LYRICA [Suspect]
     Active Substance: PREGABALIN
     Dosage: 225 MG, 3X/DAY (1 CAPSULE 3 TIMES A DAY)
     Route: 048

REACTIONS (6)
  - Musculoskeletal pain [Unknown]
  - Neuralgia [Unknown]
  - Paraesthesia [Unknown]
  - Prescribed overdose [Unknown]
  - Chest pain [Unknown]
  - Gait disturbance [Unknown]
